FAERS Safety Report 9344111 (Version 1)
Quarter: 2013Q2

REPORT INFORMATION
  Report Type: Spontaneous
  Country: BR (occurrence: BR)
  Receive Date: 20130612
  Receipt Date: 20130612
  Transmission Date: 20140414
  Serious: Yes (Life-Threatening, Other)
  Sender: FDA-Public Use
  Company Number: PHHY2013BR058768

PATIENT
  Sex: Male
  Weight: 63 kg

DRUGS (2)
  1. GLIVEC [Suspect]
     Indication: CHRONIC MYELOID LEUKAEMIA
     Dosage: 400 MG, A DAY
     Route: 048
  2. IMATINIB [Suspect]
     Indication: CHRONIC MYELOID LEUKAEMIA
     Dosage: 400 MG, A DAY
     Route: 048

REACTIONS (7)
  - Cardiac arrest [Recovered/Resolved]
  - Coronary artery occlusion [Recovered/Resolved]
  - Thyroid neoplasm [Recovered/Resolved]
  - Infarction [Recovered/Resolved]
  - White blood cell count increased [Unknown]
  - Platelet count increased [Unknown]
  - Drug ineffective [Unknown]
